FAERS Safety Report 11283328 (Version 1)
Quarter: 2015Q3

REPORT INFORMATION
  Report Type: Spontaneous
  Country: US (occurrence: None)
  Receive Date: 20150717
  Receipt Date: 20150717
  Transmission Date: 20151125
  Serious: Yes (Hospitalization)
  Sender: FDA-Public Use
  Company Number: None

PATIENT
  Age: 69 Year
  Sex: Male
  Weight: 87.7 kg

DRUGS (1)
  1. HYDROCHLOROTHIAZIDE/LISINOPRIL [Suspect]
     Active Substance: HYDROCHLOROTHIAZIDE\LISINOPRIL
     Route: 048
     Dates: start: 20120317, end: 20121204

REACTIONS (7)
  - Feeling jittery [None]
  - Coronary artery disease [None]
  - Accidental exposure to product [None]
  - Feeling cold [None]
  - Hyperkalaemia [None]
  - Blood glucose decreased [None]
  - Bundle branch block left [None]

NARRATIVE: CASE EVENT DATE: 20121203
